FAERS Safety Report 7967012-2 (Version None)
Quarter: 2011Q4

REPORT INFORMATION
  Report Type: 
  Country: None (occurrence: None)
  Receive Date: 20111209
  Receipt Date: 20111128
  Transmission Date: 20120403
  Serious: Yes (Other)
  Sender: FDA-Public Use
  Company Number: US-JNJFOC-20111112420

PATIENT
  Sex: Male
  Weight: 88.45 kg

DRUGS (2)
  1. PREDNISONE TAB [Concomitant]
     Indication: PROSTATE CANCER
     Route: 048
     Dates: start: 20110101
  2. ZYTIGA [Suspect]
     Indication: PROSTATE CANCER
     Dosage: STRENGTH: 250 MG  DOSE: 4 TABLETS
     Route: 048
     Dates: start: 20111027

REACTIONS (3)
  - FEELING ABNORMAL [None]
  - CONFUSIONAL STATE [None]
  - HOT FLUSH [None]
